FAERS Safety Report 26203569 (Version 1)
Quarter: 2025Q4

REPORT INFORMATION
  Report Type: Report from Study
  Country: TH (occurrence: TH)
  Receive Date: 20251226
  Receipt Date: 20251226
  Transmission Date: 20260117
  Serious: Yes (Other)
  Sender: BRISTOL-MYERS SQUIBB COMPANY
  Company Number: TH-BRISTOL-MYERS SQUIBB COMPANY-2025-172092

PATIENT
  Age: 75 Year
  Sex: Male

DRUGS (2)
  1. OPDIVO [Suspect]
     Active Substance: NIVOLUMAB
     Indication: Non-small cell lung cancer
     Route: 042
  2. YERVOY [Suspect]
     Active Substance: IPILIMUMAB
     Indication: Non-small cell lung cancer
     Route: 042

REACTIONS (5)
  - Mouth ulceration [Unknown]
  - Gastrointestinal ulcer [Unknown]
  - Pneumonitis [Unknown]
  - Oral fungal infection [Unknown]
  - Gastrointestinal fungal infection [Unknown]
